FAERS Safety Report 10076867 (Version 1)
Quarter: 2014Q2

REPORT INFORMATION
  Report Type: Spontaneous
  Country: IT (occurrence: IT)
  Receive Date: 20140414
  Receipt Date: 20140414
  Transmission Date: 20141212
  Serious: Yes (Other)
  Sender: FDA-Public Use
  Company Number: IT-VERTEX PHARMACEUTICALS INC-2014-001908

PATIENT
  Age: 59 Year
  Sex: Male

DRUGS (3)
  1. INCIVO [Suspect]
     Indication: CHRONIC HEPATITIS C
     Route: 048
     Dates: start: 20140104, end: 20140328
  2. PEGINTRON [Concomitant]
     Indication: CHRONIC HEPATITIS C
     Dosage: 150 ?G, UNK
     Route: 058
     Dates: start: 20140104, end: 20140407
  3. COPEGUS [Concomitant]
     Indication: CHRONIC HEPATITIS C
     Dosage: 800 MG, UNK
     Route: 048
     Dates: start: 20140104, end: 20140407

REACTIONS (1)
  - Erythema multiforme [Recovering/Resolving]
